FAERS Safety Report 4307897-4 (Version None)
Quarter: 2004Q1

REPORT INFORMATION
  Report Type: 
  Country: None (occurrence: None)
  Receive Date: 20040225
  Receipt Date: 20021231
  Transmission Date: 20041129
  Serious: Yes (Hospitalization)
  Sender: FDA-Public Use
  Company Number: WAES 0212USA01019

PATIENT
  Age: 67 Year
  Sex: Male

DRUGS (5)
  1. ZOCOR [Suspect]
     Indication: BLOOD CHOLESTEROL INCREASED
     Dosage: 40 MG/DAILY/PO; SEE IMAGE
     Route: 048
     Dates: start: 20011001, end: 20020801
  2. ZOCOR [Suspect]
     Indication: BLOOD CHOLESTEROL INCREASED
     Dosage: 40 MG/DAILY/PO; SEE IMAGE
     Route: 048
     Dates: start: 20020801, end: 20021028
  3. ATIVAN [Concomitant]
  4. NEURONTIN [Concomitant]
  5. ATENOLOL [Concomitant]

REACTIONS (1)
  - HEPATITIS [None]
